FAERS Safety Report 6745417-5 (Version None)
Quarter: 2010Q2

REPORT INFORMATION
  Report Type: 
  Country: None (occurrence: None)
  Receive Date: 20100528
  Receipt Date: 20100423
  Transmission Date: 20101027
  Serious: Yes (Hospitalization, Other)
  Sender: FDA-Public Use
  Company Number: US-BAYER-200942647NA

PATIENT
  Age: 47 Year
  Sex: Female
  Weight: 102 kg

DRUGS (7)
  1. YAZ [Suspect]
     Indication: OVARIAN CYST
     Route: 048
     Dates: start: 20080401, end: 20080521
  2. YASMIN [Suspect]
  3. ZELNORM [Concomitant]
  4. MOTRIN [Concomitant]
  5. ALEVE (CAPLET) [Concomitant]
  6. ADVIL LIQUI-GELS [Concomitant]
  7. IBUPROFEN [Concomitant]

REACTIONS (10)
  - CHEST PAIN [None]
  - COUGH [None]
  - DEEP VEIN THROMBOSIS [None]
  - DYSPNOEA [None]
  - FATIGUE [None]
  - HYPERHIDROSIS [None]
  - NAUSEA [None]
  - PAIN IN EXTREMITY [None]
  - PULMONARY EMBOLISM [None]
  - THROMBOSIS [None]
